FAERS Safety Report 6364355-3 (Version None)
Quarter: 2009Q3

REPORT INFORMATION
  Report Type: 
  Country: None (occurrence: None)
  Receive Date: 20090919
  Receipt Date: 20090721
  Transmission Date: 20100115
  Serious: Yes (Hospitalization)
  Sender: FDA-Public Use
  Company Number: US-ABBOTT-09P-163-0586561-00

PATIENT
  Sex: Female
  Weight: 45.4 kg

DRUGS (4)
  1. HUMIRA [Suspect]
     Indication: CROHN'S DISEASE
     Route: 058
     Dates: start: 20090606
  2. ARAVA [Concomitant]
     Indication: CROHN'S DISEASE
     Dosage: DAILY
  3. VITAMIN [Concomitant]
     Indication: VITAMIN SUPPLEMENTATION
     Dosage: UNKNOWN
  4. HERBALS NOS W/MINERALS NOS/VITAMINS NOS [Concomitant]
     Indication: PHYTOTHERAPY
     Dosage: DAILY

REACTIONS (4)
  - ABDOMINAL ABSCESS [None]
  - ABDOMINAL PAIN [None]
  - CROHN'S DISEASE [None]
  - DRUG DOSE OMISSION [None]
